FAERS Safety Report 18158701 (Version 1)
Quarter: 2020Q3

REPORT INFORMATION
  Report Type: Spontaneous
  Country: US (occurrence: US)
  Receive Date: 20200817
  Receipt Date: 20200817
  Transmission Date: 20201103
  Serious: No
  Sender: FDA-Public Use
  Company Number: None

PATIENT
  Age: 40 Year
  Sex: Female

DRUGS (1)
  1. TRIUMEQ [Suspect]
     Active Substance: ABACAVIR SULFATE\DOLUTEGRAVIR SODIUM\LAMIVUDINE
     Dosage: ?          OTHER DOSE:600MG/50MG/300MG;?
     Route: 048
     Dates: start: 201806

REACTIONS (2)
  - Economic problem [None]
  - Product dose omission issue [None]

NARRATIVE: CASE EVENT DATE: 20200526
